FAERS Safety Report 9157760 (Version 1)
Quarter: 2013Q1

REPORT INFORMATION
  Report Type: Spontaneous
  Country: DE (occurrence: None)
  Receive Date: 20130212
  Receipt Date: 20130212
  Transmission Date: 20140127
  Serious: Yes (Hospitalization)
  Sender: FDA-Public Use
  Company Number: AUR-APL-2013-01201

PATIENT
  Age: 7 Year
  Sex: Male
  Weight: 9 kg

DRUGS (1)
  1. LAMOTRIGINE (LAMOTRIGINIE) [Suspect]
     Indication: EPILEPSY
     Dosage: 250MG (125 MG, 2 IN 1 D), UNKNOWN
     Dates: start: 20121201

REACTIONS (2)
  - Convulsion [None]
  - Anticonvulsant drug level decreased [None]
